FAERS Safety Report 12763959 (Version 4)
Quarter: 2016Q4

REPORT INFORMATION
  Report Type: Spontaneous
  Country: CN (occurrence: CN)
  Receive Date: 20160920
  Receipt Date: 20161018
  Transmission Date: 20170207
  Serious: Yes (Life-Threatening, Hospitalization, Other)
  Sender: FDA-Public Use
  Company Number: CN-ASTRAZENECA-2016SE97993

PATIENT
  Age: 50 Year
  Sex: Female

DRUGS (3)
  1. FASLODEX [Suspect]
     Active Substance: FULVESTRANT
     Indication: METASTASES TO BONE
     Route: 030
     Dates: start: 2016
  2. XELODA [Concomitant]
     Active Substance: CAPECITABINE
  3. FASLODEX [Suspect]
     Active Substance: FULVESTRANT
     Indication: METASTASES TO BONE
     Route: 030

REACTIONS (12)
  - Coma [Recovered/Resolved]
  - Hypersensitivity [Recovered/Resolved]
  - Metastasis [Unknown]
  - Pleural effusion [Recovering/Resolving]
  - Palpitations [Not Recovered/Not Resolved]
  - Blood bilirubin increased [Unknown]
  - Pulmonary embolism [Unknown]
  - Metastases to bone [Unknown]
  - Metastases to lung [Unknown]
  - Cough [Recovered/Resolved]
  - Dyspnoea [Not Recovered/Not Resolved]
  - Transaminases increased [Unknown]

NARRATIVE: CASE EVENT DATE: 201609
